FAERS Safety Report 9472512 (Version 1)
Quarter: 2013Q3

REPORT INFORMATION
  Report Type: Report from Study
  Country: US (occurrence: US)
  Receive Date: 20130823
  Receipt Date: 20130823
  Transmission Date: 20140515
  Serious: Yes (Hospitalization)
  Sender: FDA-Public Use
  Company Number: PHEH2013US017793

PATIENT
  Age: 57 Year
  Sex: Female

DRUGS (18)
  1. AFINITOR [Suspect]
     Indication: TUBEROUS SCLEROSIS
     Dosage: 5 MG, QD
     Route: 048
     Dates: start: 20130201
  2. NORVASC [Concomitant]
  3. VITAMIN B [Concomitant]
  4. ARANESP [Concomitant]
  5. LASIX [Concomitant]
  6. SYNTHROID [Concomitant]
  7. MAGNESIUM OXIDE [Concomitant]
  8. ZYPREXA [Concomitant]
  9. TRILEPTAL [Concomitant]
  10. VITAMIIN C [Concomitant]
  11. FERROUS SULFATE [Concomitant]
  12. HYDRALAZINE [Concomitant]
  13. LISINOPRIL [Concomitant]
  14. CLARITIN [Concomitant]
  15. ATIVAN [Concomitant]
  16. METOPROLOL [Concomitant]
  17. ZOLOFT [Concomitant]
  18. NATURAL VITAMIN D [Concomitant]

REACTIONS (9)
  - Hypotension [Unknown]
  - Tremor [Unknown]
  - Dizziness [Unknown]
  - Feeling cold [Unknown]
  - Pneumonia [Unknown]
  - Urinary tract infection [Unknown]
  - Anaemia [Unknown]
  - Asthenia [Unknown]
  - Pyrexia [Unknown]
